FAERS Safety Report 13535702 (Version 1)
Quarter: 2017Q2

REPORT INFORMATION
  Report Type: Spontaneous
  Country: US (occurrence: US)
  Receive Date: 20170511
  Receipt Date: 20170511
  Transmission Date: 20170830
  Serious: No
  Sender: FDA-Public Use
  Company Number: ALCN2017US003246

PATIENT
  Sex: Male

DRUGS (1)
  1. SYSTANE ULTRA [Suspect]
     Active Substance: POLYETHYLENE GLYCOL 400\PROPYLENE GLYCOL
     Indication: DRY EYE
     Dosage: 2 GTT, QD
     Route: 047

REACTIONS (7)
  - Vision blurred [Unknown]
  - Tongue disorder [Unknown]
  - Eye swelling [Unknown]
  - Dysarthria [Unknown]
  - Dysphonia [Unknown]
  - Abnormal sensation in eye [Unknown]
  - Eyelid ptosis [Unknown]
